FAERS Safety Report 21759163 (Version 1)
Quarter: 2022Q4

REPORT INFORMATION
  Report Type: Spontaneous
  Country: US (occurrence: US)
  Receive Date: 20221221
  Receipt Date: 20221221
  Transmission Date: 20230113
  Serious: No
  Sender: FDA-Public Use
  Company Number: US-ASCENDIS PHARMA-2022US001168

PATIENT

DRUGS (6)
  1. SKYTROFA [Suspect]
     Active Substance: LONAPEGSOMATROPIN-TCGD
     Indication: Hypopituitarism
     Dosage: 6.3 MG, ONCE A WEEK
     Route: 058
  2. ANIMAL PARADE GOLD CHILDREN^S CHEWABLE MULTI VITAMIN + MINERAL SUPPLEM [Concomitant]
     Indication: Product used for unknown indication
  3. CULTURELLE KIDS CHEWABLES [Concomitant]
     Indication: Product used for unknown indication
  4. LEVALBUTEROL HYDROCHLORIDE [Concomitant]
     Active Substance: LEVALBUTEROL HYDROCHLORIDE
     Indication: Product used for unknown indication
  5. ADVAIR HFA [Concomitant]
     Active Substance: FLUTICASONE PROPIONATE\SALMETEROL XINAFOATE
     Indication: Product used for unknown indication
  6. AUVI-Q [Concomitant]
     Active Substance: EPINEPHRINE
     Indication: Product used for unknown indication

REACTIONS (1)
  - Drug ineffective [Unknown]
